FAERS Safety Report 14150829 (Version 2)
Quarter: 2017Q4

REPORT INFORMATION
  Report Type: Spontaneous
  Country: ES (occurrence: ES)
  Receive Date: 20171102
  Receipt Date: 20171109
  Transmission Date: 20180321
  Serious: Yes (Other)
  Sender: FDA-Public Use
  Company Number: ES-CONCORDIA PHARMACEUTICALS INC.-GSH201710-006107

PATIENT
  Age: 56 Year
  Sex: Female

DRUGS (1)
  1. HYDROXYCHLOROQUINE [Suspect]
     Active Substance: HYDROXYCHLOROQUINE
     Indication: PRODUCT USED FOR UNKNOWN INDICATION
     Route: 065

REACTIONS (7)
  - Retinal tear [Recovering/Resolving]
  - Visual acuity reduced [Recovering/Resolving]
  - Retinal detachment [Recovering/Resolving]
  - Retinal injury [Recovering/Resolving]
  - Maculopathy [Recovering/Resolving]
  - Macular detachment [Recovering/Resolving]
  - Toxicity to various agents [Recovering/Resolving]
